FAERS Safety Report 7478167-0 (Version None)
Quarter: 2011Q2

REPORT INFORMATION
  Report Type: 
  Country: None (occurrence: None)
  Receive Date: 20110513
  Receipt Date: 20110503
  Transmission Date: 20111010
  Serious: Yes (Hospitalization, Other)
  Sender: FDA-Public Use
  Company Number: PHHY2011US37233

PATIENT
  Sex: Male
  Weight: 60 kg

DRUGS (3)
  1. IBUPROFEN [Concomitant]
     Indication: PAIN
     Dosage: 600 MG, QID
     Dates: start: 20100217, end: 20100220
  2. FOLIC ACID [Concomitant]
     Dosage: 1 MG, UNK
     Route: 048
     Dates: start: 19890228
  3. EXJADE [Suspect]
     Indication: SICKLE CELL ANAEMIA
     Dosage: 1750 MG, QD
     Route: 050

REACTIONS (5)
  - OROPHARYNGEAL PAIN [None]
  - PYREXIA [None]
  - PHARYNGITIS [None]
  - PAIN [None]
  - SICKLE CELL ANAEMIA WITH CRISIS [None]
